FAERS Safety Report 17830941 (Version 3)
Quarter: 2025Q1

REPORT INFORMATION
  Report Type: Spontaneous
  Country: US (occurrence: US)
  Receive Date: 20200527
  Receipt Date: 20250321
  Transmission Date: 20250409
  Serious: Yes (Other)
  Sender: MAYNE
  Company Number: US-THERAPEUTICSMD-2020TMD01232

PATIENT

DRUGS (1)
  1. ANNOVERA [Suspect]
     Active Substance: ETHINYL ESTRADIOL\SEGESTERONE ACETATE
     Indication: Contraception
     Route: 067

REACTIONS (3)
  - Facial paralysis [Recovered/Resolved]
  - Product substitution issue [Recovered/Resolved]
  - Migraine [Unknown]
